FAERS Safety Report 8320714-0 (Version None)
Quarter: 2012Q2

REPORT INFORMATION
  Report Type: 
  Country: None (occurrence: None)
  Receive Date: 20120430
  Receipt Date: 20120426
  Transmission Date: 20120825
  Serious: Yes (Other)
  Sender: FDA-Public Use
  Company Number: ES-BAYER-2012-040635

PATIENT
  Age: 85 Year
  Sex: Female

DRUGS (1)
  1. MOXIFLOXACIN [Suspect]
     Dosage: UNK
     Route: 048
     Dates: start: 20120101

REACTIONS (3)
  - COGNITIVE DISORDER [None]
  - HALLUCINATION, VISUAL [None]
  - CONFUSIONAL STATE [None]
